FAERS Safety Report 7147307-5 (Version None)
Quarter: 2010Q4

REPORT INFORMATION
  Report Type: 
  Country: None (occurrence: None)
  Receive Date: 20101209
  Receipt Date: 20080717
  Transmission Date: 20110411
  Serious: Yes (Death, Hospitalization)
  Sender: FDA-Public Use
  Company Number: US-ACTELION-A-NJ2007-17033

PATIENT

DRUGS (2)
  1. TRACLEER [Suspect]
     Indication: PULMONARY ARTERIAL HYPERTENSION
     Route: 048
     Dates: start: 20060209, end: 20080701
  2. COUMADIN [Concomitant]

REACTIONS (6)
  - COLON CANCER [None]
  - DEATH [None]
  - FALL [None]
  - HIP FRACTURE [None]
  - INTESTINAL OBSTRUCTION [None]
  - SURGERY [None]
